FAERS Safety Report 12209321 (Version 2)
Quarter: 2016Q2

REPORT INFORMATION
  Report Type: Report from Study
  Country: AU (occurrence: AU)
  Receive Date: 20160324
  Receipt Date: 20160505
  Transmission Date: 20160815
  Serious: Yes (Life-Threatening, Other)
  Sender: FDA-Public Use
  Company Number: AU-ABBVIE-16P-008-1588943-00

PATIENT
  Age: 76 Year
  Sex: Male

DRUGS (1)
  1. LUCRIN DEPOT [Suspect]
     Active Substance: LEUPROLIDE ACETATE
     Indication: PROSTATE CANCER
     Route: 030
     Dates: start: 20150515

REACTIONS (4)
  - Hyperhidrosis [Unknown]
  - Acute myocardial infarction [Unknown]
  - Coronary artery occlusion [Not Recovered/Not Resolved]
  - Coronary artery occlusion [Recovered/Resolved]

NARRATIVE: CASE EVENT DATE: 201512
